FAERS Safety Report 11616728 (Version 3)
Quarter: 2016Q2

REPORT INFORMATION
  Report Type: Report from Study
  Country: DE (occurrence: DE)
  Receive Date: 20151009
  Receipt Date: 20160406
  Transmission Date: 20160815
  Serious: Yes (Hospitalization)
  Sender: FDA-Public Use
  Company Number: DE-ABBVIE-15P-062-1464665-00

PATIENT
  Age: 75 Year
  Sex: Female

DRUGS (2)
  1. DUODOPA [Suspect]
     Active Substance: CARBIDOPA\LEVODOPA
     Dosage: MD 7.0 ML, CRD 2.0-2.7 ML/H, CRN 2.7 ML/H, ED 2.0
     Route: 050
     Dates: start: 20150831
  2. DUODOPA [Suspect]
     Active Substance: CARBIDOPA\LEVODOPA
     Indication: PARKINSON^S DISEASE
     Dosage: MD 7.0 ML; CRD 2.2 ML/H; CRN AFTERNOON 2.7 ML/H; ED 2.0 ML
     Route: 050
     Dates: start: 20150831, end: 20150831

REACTIONS (5)
  - Stoma site erythema [Unknown]
  - Stoma site extravasation [Unknown]
  - Hyperkinesia [Recovered/Resolved]
  - Injection site reaction [Unknown]
  - Injection site inflammation [Not Recovered/Not Resolved]

NARRATIVE: CASE EVENT DATE: 201509
